FAERS Safety Report 19037388 (Version 1)
Quarter: 2021Q1

REPORT INFORMATION
  Report Type: Spontaneous
  Country: US (occurrence: US)
  Receive Date: 20210322
  Receipt Date: 20210322
  Transmission Date: 20210420
  Serious: No
  Sender: FDA-Public Use
  Company Number: US-AMGEN-USASP2021042428

PATIENT
  Sex: Female

DRUGS (11)
  1. PRAVACHOL [Concomitant]
     Active Substance: PRAVASTATIN SODIUM
     Dosage: 40 MILLIGRAM
  2. VITAMIN D [COLECALCIFEROL] [Concomitant]
     Active Substance: CHOLECALCIFEROL
     Dosage: 25 MICROGRAM
  3. VITAMIN C [Concomitant]
     Active Substance: ASCORBIC ACID
     Dosage: 1000 MILLIGRAM
  4. ASPIRIN [ACETYLSALICYLIC ACID] [Concomitant]
     Active Substance: ASPIRIN
     Dosage: 81 MILLIGRAM
  5. CARVEDILOL. [Concomitant]
     Active Substance: CARVEDILOL
     Dosage: 25 MILLIGRAM
  6. CALCIUM [Concomitant]
     Active Substance: CALCIUM
     Dosage: 500?125M
  7. FISH OIL [Concomitant]
     Active Substance: FISH OIL
     Dosage: 1200 MILLIGRAM
  8. HYDROCHLOROTH [Concomitant]
     Active Substance: HYDROCHLOROTHIAZIDE
     Dosage: 50 MILLIGRAM
  9. REPATHA [Suspect]
     Active Substance: EVOLOCUMAB
     Indication: ARTERIOSCLEROSIS
     Dosage: 140 MILLIGRAM, QMO
     Route: 058
     Dates: start: 20181030
  10. TRICOR [ADENOSINE] [Concomitant]
     Active Substance: ADENOSINE
     Dosage: 145 MILLIGRAM
  11. LOSARTAN POTASSSIUM [Concomitant]
     Active Substance: LOSARTAN POTASSIUM
     Dosage: 100 MILLIGRAM

REACTIONS (1)
  - Hyperglycaemia [Not Recovered/Not Resolved]
